FAERS Safety Report 8830533 (Version 1)
Quarter: 2012Q4

REPORT INFORMATION
  Report Type: Spontaneous
  Country: FR (occurrence: None)
  Receive Date: 20121004
  Receipt Date: 20121004
  Transmission Date: 20130627
  Serious: Yes (Death, Life-Threatening)
  Sender: FDA-Public Use
  Company Number: 1428611

PATIENT
  Age: 63 Year
  Sex: Female

DRUGS (8)
  1. CARBOPLATIN [Suspect]
     Indication: CHEMOTHERAPY
     Dosage: (not otherwise specified)
     Route: 042
     Dates: start: 20120711, end: 20120813
  2. PACLITAXEL [Suspect]
     Indication: CHEMOTHERAPY
     Dosage: (not otherwise specified)
     Route: 042
     Dates: start: 20120711, end: 20120813
  3. AVASTIN [Suspect]
     Indication: CHEMOTHERAPY
     Dosage: (not otherwise specified)
     Route: 042
  4. AUGMENTIN [Concomitant]
  5. OFLOCET /00731801/) [Concomitant]
  6. LOVENOX [Concomitant]
  7. NEUPOGEN [Concomitant]
  8. (FRAGMINE) [Concomitant]

REACTIONS (11)
  - Ischaemic stroke [None]
  - Myocardial infarction [None]
  - Pyrexia [None]
  - Abdominal pain [None]
  - Subclavian vein thrombosis [None]
  - Jugular vein thrombosis [None]
  - Respiratory distress [None]
  - Pulmonary oedema [None]
  - Coma [None]
  - Asthenia [None]
  - Dizziness [None]
